FAERS Safety Report 10011294 (Version 2)
Quarter: 2014Q2

REPORT INFORMATION
  Report Type: Spontaneous
  Country: GB (occurrence: None)
  Receive Date: 20140311
  Receipt Date: 20140407
  Transmission Date: 20141212
  Serious: Yes (Death, Hospitalization)
  Sender: FDA-Public Use
  Company Number: 2223475

PATIENT
  Age: 87 Year
  Sex: Female

DRUGS (9)
  1. GENTAMICIN SULFATE [Suspect]
     Indication: SURGERY
     Route: 042
     Dates: start: 20140101, end: 20140101
  2. PIPERACILLIN/TAZOBACTAM [Suspect]
     Indication: PNEUMONIA
     Route: 042
     Dates: start: 20140113, end: 20140117
  3. TEICOPLANIN [Suspect]
     Indication: SURGERY
     Route: 042
     Dates: start: 20140101, end: 20140101
  4. CALCIUM CARBONATE W/ COLECALCIFEROL [Concomitant]
  5. ALENDRONATE [Concomitant]
  6. LANSOPRAZOLE [Concomitant]
  7. MACROGOL [Concomitant]
  8. MIRTAZAPINE [Suspect]
  9. ENEMA [Concomitant]

REACTIONS (1)
  - Clostridium difficile infection [None]
